FAERS Safety Report 13864389 (Version 1)
Quarter: 2017Q3

REPORT INFORMATION
  Report Type: Spontaneous
  Country: US (occurrence: US)
  Receive Date: 20170812
  Receipt Date: 20170812
  Transmission Date: 20171127
  Serious: No
  Sender: FDA-Public Use
  Company Number: None

PATIENT
  Age: 82 Year
  Sex: Female
  Weight: 63 kg

DRUGS (15)
  1. LIVALO [Suspect]
     Active Substance: PITAVASTATIN CALCIUM
  2. VITAMIN C [Concomitant]
     Active Substance: ASCORBIC ACID
  3. CLONAZEPAM. [Suspect]
     Active Substance: CLONAZEPAM
  4. FLONASE [Concomitant]
     Active Substance: FLUTICASONE PROPIONATE
  5. ONE-A-DAY NOS [Concomitant]
     Active Substance: MINERALS\VITAMINS
  6. MAGNIUM CITRATE [Concomitant]
  7. CETIRIZINE [Suspect]
     Active Substance: CETIRIZINE HYDROCHLORIDE
  8. VITAMIN D3 [Concomitant]
     Active Substance: CHOLECALCIFEROL
  9. SOTALOL 80 MG [Suspect]
     Active Substance: SOTALOL
     Indication: CARDIAC DISORDER
     Dosage: ?          QUANTITY:60 TABLET(S);?
     Route: 048
     Dates: start: 20170520
  10. NYSTATIN. [Suspect]
     Active Substance: NYSTATIN
  11. CALCIUM CITRATE WITH VITAMIN D [Concomitant]
     Active Substance: CALCIUM CITRATE\VITAMIN D
  12. ELIQUIS [Suspect]
     Active Substance: APIXABAN
  13. SERTRALINE [Suspect]
     Active Substance: SERTRALINE HYDROCHLORIDE
  14. RESTASIS [Concomitant]
     Active Substance: CYCLOSPORINE
  15. BIOTIN [Concomitant]
     Active Substance: BIOTIN

REACTIONS (1)
  - Candida infection [None]

NARRATIVE: CASE EVENT DATE: 20170603
